FAERS Safety Report 24048259 (Version 1)
Quarter: 2024Q3

REPORT INFORMATION
  Report Type: Spontaneous
  Country: US (occurrence: US)
  Receive Date: 20240704
  Receipt Date: 20240704
  Transmission Date: 20241017
  Serious: Yes (Hospitalization)
  Sender: EMCURE
  Company Number: US-AVET LIFESCIENCES LTD-2024-AVET-000230

PATIENT
  Age: 67 Year
  Sex: Female

DRUGS (8)
  1. METFORMIN [Suspect]
     Active Substance: METFORMIN HYDROCHLORIDE
     Indication: Type 2 diabetes mellitus
     Dosage: 500 MILLIGRAM, BID
     Route: 065
  2. INSULIN NOS [Suspect]
     Active Substance: INSULIN NOS
     Indication: Product used for unknown indication
     Dosage: 6 UNITS WITH MEALS
     Route: 065
  3. GLIMEPIRIDE [Concomitant]
     Active Substance: GLIMEPIRIDE
     Dosage: 4 MILLIGRAM, QD DAILY
     Route: 065
  4. GLIPIZIDE [Concomitant]
     Active Substance: GLIPIZIDE
     Dosage: 10 MILLIGRAM, BID
     Route: 065
  5. WARFARIN [Concomitant]
     Active Substance: WARFARIN
     Indication: Atrial fibrillation
     Dosage: 4 MILLIGRAM, QD DAILY
     Route: 065
  6. LEVOTHYROXINE [Concomitant]
     Active Substance: LEVOTHYROXINE\LEVOTHYROXINE SODIUM
     Dosage: 75 MICROGRAM, QD DAILY
     Route: 065
  7. DONEPEZIL [Concomitant]
     Active Substance: DONEPEZIL\DONEPEZIL HYDROCHLORIDE
     Dosage: 10 MILLIGRAM, QD
     Route: 065
  8. QUETIAPINE [Concomitant]
     Active Substance: QUETIAPINE
     Dosage: 60 MILLIGRAM, QD DAILY
     Route: 065

REACTIONS (3)
  - Toxicity to various agents [Unknown]
  - Metabolic acidosis [Recovering/Resolving]
  - Hypoglycaemia [Unknown]
